FAERS Safety Report 12435099 (Version 1)
Quarter: 2016Q2

REPORT INFORMATION
  Report Type: Spontaneous
  Country: US (occurrence: US)
  Receive Date: 20160603
  Receipt Date: 20160603
  Transmission Date: 20160815
  Serious: Yes (Hospitalization, Other)
  Sender: FDA-Public Use
  Company Number: US-ROCHE-1606959

PATIENT
  Age: 68 Year
  Sex: Male

DRUGS (5)
  1. VITAMIN D3 [Concomitant]
     Active Substance: CHOLECALCIFEROL
     Route: 065
  2. XELODA [Suspect]
     Active Substance: CAPECITABINE
     Indication: COLON CANCER
     Dosage: 6 PILLS PER DAY
     Route: 065
     Dates: start: 20150430
  3. AMLODIPINE [Concomitant]
     Active Substance: AMLODIPINE BESYLATE
     Route: 065
  4. XELODA [Suspect]
     Active Substance: CAPECITABINE
     Dosage: 5 PILLS PER DAY
     Route: 065
     Dates: start: 20150520, end: 20150525
  5. OXALIPLATIN. [Concomitant]
     Active Substance: OXALIPLATIN
     Route: 065

REACTIONS (9)
  - Dehydration [Recovered/Resolved]
  - Diarrhoea [Unknown]
  - Feeling abnormal [Recovering/Resolving]
  - Dihydropyrimidine dehydrogenase deficiency [Unknown]
  - Loss of consciousness [Unknown]
  - Asthenia [Recovering/Resolving]
  - Micturition urgency [Not Recovered/Not Resolved]
  - Skin exfoliation [Not Recovered/Not Resolved]
  - Urine flow decreased [Not Recovered/Not Resolved]

NARRATIVE: CASE EVENT DATE: 20150517
